FAERS Safety Report 22902144 (Version 3)
Quarter: 2023Q4

REPORT INFORMATION
  Report Type: Report from Study
  Country: US (occurrence: US)
  Receive Date: 20230904
  Receipt Date: 20231020
  Transmission Date: 20240110
  Serious: Yes (Hospitalization)
  Sender: FDA-Public Use
  Company Number: US-002147023-NVSC2023US190920

PATIENT
  Sex: Male

DRUGS (1)
  1. ENTRESTO [Suspect]
     Active Substance: SACUBITRIL\VALSARTAN
     Indication: Product used for unknown indication
     Dosage: UNK
     Route: 065
     Dates: start: 2023

REACTIONS (8)
  - Cardiac failure congestive [Unknown]
  - Swelling [Unknown]
  - Renal disorder [Unknown]
  - Lung disorder [Unknown]
  - Blood pressure inadequately controlled [Unknown]
  - Pain [Unknown]
  - Arthralgia [Unknown]
  - Hot flush [Unknown]
